FAERS Safety Report 6211522-5 (Version None)
Quarter: 2009Q2

REPORT INFORMATION
  Report Type: 
  Country: None (occurrence: None)
  Receive Date: 20090528
  Receipt Date: 20090516
  Transmission Date: 20091009
  Serious: Yes (Death)
  Sender: FDA-Public Use
  Company Number: TPH-00182

PATIENT
  Age: 33 Year
  Sex: Female

DRUGS (1)
  1. TRIQUILAR [Suspect]
     Indication: DRUG USE FOR UNKNOWN INDICATION
     Dosage: ORAL
     Route: 048

REACTIONS (4)
  - DIARRHOEA [None]
  - HEADACHE [None]
  - PAIN [None]
  - VOMITING [None]
